FAERS Safety Report 19500589 (Version 2)
Quarter: 2021Q3

REPORT INFORMATION
  Report Type: Spontaneous
  Country: PL (occurrence: PL)
  Receive Date: 20210707
  Receipt Date: 20210913
  Transmission Date: 20211014
  Serious: Yes (Death)
  Sender: FDA-Public Use
  Company Number: PL-ROCHE-2863138

PATIENT
  Sex: Female

DRUGS (4)
  1. OBINUTUZUMAB. [Suspect]
     Active Substance: OBINUTUZUMAB
     Indication: FOLLICULAR LYMPHOMA
     Dosage: LAST ADMINISTRATION OF OBINUTUZUMAB ON 20/APR/2021
     Route: 042
     Dates: start: 20201120
  2. LORISTA [Concomitant]
     Active Substance: LOSARTAN POTASSIUM
  3. TELFEXO [Concomitant]
     Active Substance: FEXOFENADINE HYDROCHLORIDE
  4. CLEXANE [Concomitant]
     Active Substance: ENOXAPARIN SODIUM
     Route: 058

REACTIONS (1)
  - COVID-19 [Fatal]
